FAERS Safety Report 4534904-6 (Version None)
Quarter: 2004Q4

REPORT INFORMATION
  Report Type: 
  Country: None (occurrence: None)
  Receive Date: 20041222
  Receipt Date: 20040721
  Transmission Date: 20050328
  Serious: No
  Sender: FDA-Public Use
  Company Number: US-BRISTOL-MYERS SQUIBB COMPANY-12647780

PATIENT
  Age: 86 Year
  Sex: Female
  Weight: 70 kg

DRUGS (6)
  1. PRAVACHOL [Suspect]
     Indication: BLOOD CHOLESTEROL INCREASED
     Route: 048
     Dates: end: 20040601
  2. COREG [Concomitant]
  3. WARFARIN SODIUM [Concomitant]
  4. DIOVAN [Concomitant]
  5. AMARYL [Concomitant]
  6. DIGITEK [Concomitant]

REACTIONS (2)
  - ARTHRALGIA [None]
  - ASTHENIA [None]
